FAERS Safety Report 11432653 (Version 1)
Quarter: 2015Q3

REPORT INFORMATION
  Report Type: Spontaneous
  Country: US (occurrence: US)
  Receive Date: 20150828
  Receipt Date: 20150828
  Transmission Date: 20151125
  Serious: Yes (Hospitalization)
  Sender: FDA-Public Use
  Company Number: US-SA-2015SA130549

PATIENT
  Sex: Female

DRUGS (2)
  1. PRALUENT [Suspect]
     Active Substance: ALIROCUMAB
     Indication: HYPERCHOLESTEROLAEMIA
     Dosage: ROUTE: UNDER THE SKIN
  2. ALIROCUMAB PREFILLED PEN [Concomitant]
     Indication: HYPERCHOLESTEROLAEMIA

REACTIONS (1)
  - Hospitalisation [Unknown]
